FAERS Safety Report 4404270-5 (Version None)
Quarter: 2004Q3

REPORT INFORMATION
  Report Type: 
  Country: None (occurrence: None)
  Receive Date: 20040719
  Receipt Date: 20040701
  Transmission Date: 20050211
  Serious: Yes (Hospitalization)
  Sender: FDA-Public Use
  Company Number: T04-GER-02858-01

PATIENT
  Age: 75 Year
  Sex: Female

DRUGS (5)
  1. CITALOPRAM HYDROBROMIDE [Suspect]
     Indication: DEPRESSION
     Dosage: 20 MG QD PO
     Route: 048
     Dates: end: 20040307
  2. CONVULEX (VALPROIC ACID) (VALPROIC ACID) [Suspect]
     Indication: EPILEPSY
     Dosage: 120 MG QD PO
     Route: 048
     Dates: start: 20040216, end: 20040309
  3. ATACAND [Concomitant]
  4. DIGITOXIN TAB [Concomitant]
  5. PHENPROCOUMON [Concomitant]

REACTIONS (6)
  - CEREBRAL INFARCTION [None]
  - DRUG INTERACTION [None]
  - FATIGUE [None]
  - GAIT DISTURBANCE [None]
  - MUSCULAR WEAKNESS [None]
  - SOMNOLENCE [None]
